FAERS Safety Report 7262908-1 (Version None)
Quarter: 2011Q1

REPORT INFORMATION
  Report Type: 
  Country: None (occurrence: None)
  Receive Date: 20110130
  Receipt Date: 20100902
  Transmission Date: 20110831
  Serious: Yes (Hospitalization)
  Sender: FDA-Public Use
  Company Number: US-ABBOTT-10P-163-0668524-00

PATIENT
  Sex: Female
  Weight: 128.03 kg

DRUGS (3)
  1. HUMIRA [Suspect]
     Dates: start: 20100801
  2. HUMIRA [Suspect]
     Indication: CROHN'S DISEASE
     Dates: start: 20091001, end: 20091001
  3. 37 MEDICATIONS [Concomitant]
     Indication: PRODUCT USED FOR UNKNOWN INDICATION

REACTIONS (3)
  - CROHN'S DISEASE [None]
  - UPPER RESPIRATORY TRACT INFECTION [None]
  - DIABETES MELLITUS [None]
